FAERS Safety Report 6074152-4 (Version None)
Quarter: 2009Q1

REPORT INFORMATION
  Report Type: 
  Country: None (occurrence: None)
  Receive Date: 20090211
  Receipt Date: 20090130
  Transmission Date: 20090719
  Serious: Yes (Hospitalization)
  Sender: FDA-Public Use
  Company Number: DE-ROCHE-565217

PATIENT
  Age: 63 Year
  Sex: Male
  Weight: 78 kg

DRUGS (23)
  1. MYCOPHENOLATE MOFETIL [Suspect]
     Indication: RENAL TRANSPLANT
     Route: 048
  2. RITUXIMAB [Suspect]
     Indication: RENAL TRANSPLANT
     Dosage: DOSAGE FORM:INFUSION AS PER PROTOCOL
     Route: 042
  3. URBASON [Suspect]
     Indication: RENAL TRANSPLANT
     Dosage: DRUG:JRBASON
     Route: 042
     Dates: start: 20080515
  4. DECORTIN H [Suspect]
     Indication: RENAL TRANSPLANT
     Route: 048
  5. DECORTIN H [Suspect]
     Route: 048
  6. PROGRAF [Suspect]
     Indication: RENAL TRANSPLANT
     Route: 048
     Dates: end: 20081027
  7. PANTOZOL [Concomitant]
  8. PROPRANOLOL [Concomitant]
     Dosage: DRUG:PROPANOLOL
  9. MOXONIDINE [Concomitant]
     Dosage: DRUG:MOXONIDIN
  10. AMLODIPINE [Concomitant]
  11. ALFACALCIDOL [Concomitant]
  12. SIMVASTATIN [Concomitant]
  13. PHENPROCOUMON [Concomitant]
     Dosage: DAILY DOSE NOT CAPTURED DUE TO ILLEGIBLE HAND-WRITING.
  14. COTRIM [Concomitant]
     Dosage: FREQUENCY REPORTED AS 2*WOCHE
  15. ARANESP [Concomitant]
     Dosage: FREQUENCY REPORTED AS WOCHEAHICH
  16. CANDESARTAN [Concomitant]
     Dosage: DRUG:CANDESATAN
  17. XARTAN [Concomitant]
     Dosage: DOSE REPORTED AS 20 IE
  18. INSULIN HUMAN [Concomitant]
  19. RAMIPRIL [Concomitant]
  20. 1 CONCOMITANT DRUG [Concomitant]
     Dosage: DRUG REPORTED AS NA-BIC.
  21. PANTOPRAZOL [Concomitant]
  22. REPAGLINID [Concomitant]
  23. METRONIDAZOLE [Concomitant]

REACTIONS (2)
  - GRAFT DYSFUNCTION [None]
  - THERAPEUTIC AGENT TOXICITY [None]
